FAERS Safety Report 11235594 (Version 1)
Quarter: 2015Q3

REPORT INFORMATION
  Report Type: Spontaneous
  Country: IT (occurrence: IT)
  Receive Date: 20150702
  Receipt Date: 20150702
  Transmission Date: 20151125
  Serious: Yes (Hospitalization)
  Sender: FDA-Public Use
  Company Number: IT-SA-2015SA091668

PATIENT
  Age: 76 Year
  Sex: Male

DRUGS (8)
  1. APIXABAN [Concomitant]
     Active Substance: APIXABAN
  2. EFFEXOR [Concomitant]
     Active Substance: VENLAFAXINE HYDROCHLORIDE
     Dosage: 75MG
  3. LANOXIN [Suspect]
     Active Substance: DIGOXIN
     Route: 048
     Dates: start: 20100101
  4. LEVOPRAID [Concomitant]
     Active Substance: SULPIRIDE
     Dosage: 25MG
  5. LASIX [Suspect]
     Active Substance: FUROSEMIDE
     Route: 048
     Dates: start: 20100101, end: 20150607
  6. LYRICA [Concomitant]
     Active Substance: PREGABALIN
     Dosage: 75MG
  7. LUVION [Suspect]
     Active Substance: CANRENONE
     Route: 048
     Dates: start: 20100101, end: 20150607
  8. ANSIMAR [Concomitant]
     Active Substance: DOXOFYLLINE
     Dosage: 20MG/ML

REACTIONS (1)
  - Asthenia [Recovered/Resolved]

NARRATIVE: CASE EVENT DATE: 20150518
